FAERS Safety Report 7296937-9 (Version None)
Quarter: 2011Q1

REPORT INFORMATION
  Report Type: 
  Country: None (occurrence: None)
  Receive Date: 20110216
  Receipt Date: 20110209
  Transmission Date: 20110831
  Serious: Yes (Other)
  Sender: FDA-Public Use
  Company Number: US-JNJFOC-20101202961

PATIENT
  Sex: Male
  Weight: 124.74 kg

DRUGS (7)
  1. BENICAR [Concomitant]
     Indication: HYPERTENSION
     Dosage: DAILY
     Route: 048
  2. PREDNISONE [Concomitant]
     Indication: INFLAMMATION
     Dosage: DAILY
     Route: 048
  3. TRIAZOLAM [Concomitant]
     Indication: INSOMNIA
     Dosage: DAILY
     Route: 048
  4. XANAX [Concomitant]
     Indication: ANXIETY
     Dosage: DAILY
     Route: 048
  5. ZOCOR [Concomitant]
     Indication: BLOOD CHOLESTEROL
     Dosage: DAILY
     Route: 048
  6. REMICADE [Suspect]
     Indication: RHEUMATOID ARTHRITIS
     Route: 042
  7. OXYCONTIN [Concomitant]
     Indication: BACK PAIN
     Dosage: DAILY
     Route: 048

REACTIONS (5)
  - IMPAIRED HEALING [None]
  - DYSPHONIA [None]
  - OROPHARYNGEAL PAIN [None]
  - ABSCESS LIMB [None]
  - DYSPHAGIA [None]
